FAERS Safety Report 4285003-2 (Version None)
Quarter: 2004Q1

REPORT INFORMATION
  Report Type: 
  Country: None (occurrence: None)
  Receive Date: 20040204
  Receipt Date: 20030903
  Transmission Date: 20041129
  Serious: No
  Sender: FDA-Public Use
  Company Number: WAES 0309FRA00011

PATIENT
  Age: 65 Year
  Sex: Female

DRUGS (6)
  1. PROPOXYPHENE HYDROCHLORIDE AND ACETAMINOPHEN [Concomitant]
     Indication: OSTEOARTHRITIS
     Route: 048
  2. FOSAMAX [Suspect]
     Indication: OSTEOPOROSIS
     Route: 048
     Dates: start: 20020814, end: 20030109
  3. FOSAMAX [Suspect]
     Route: 048
     Dates: start: 19980101, end: 20020814
  4. CALCIFEDIOL [Concomitant]
     Indication: OSTEOPOROSIS
     Route: 048
     Dates: start: 20020101
  5. CELECOXIB [Concomitant]
     Route: 048
     Dates: start: 20011101, end: 20030109
  6. DILTIAZEM HYDROCHLORIDE [Concomitant]
     Indication: HYPERTENSION
     Route: 048

REACTIONS (2)
  - PANCREATIC NECROSIS [None]
  - PANCREATITIS ACUTE [None]
